FAERS Safety Report 5509819-7 (Version None)
Quarter: 2007Q4

REPORT INFORMATION
  Report Type: 
  Country: None (occurrence: None)
  Receive Date: 20071108
  Receipt Date: 20071030
  Transmission Date: 20080405
  Serious: Yes (Hospitalization, Other)
  Sender: FDA-Public Use
  Company Number: US-ASTRAZENECA-2007UW02081

PATIENT
  Age: 538 Month
  Sex: Male
  Weight: 140.9 kg

DRUGS (2)
  1. SEROQUEL [Suspect]
     Indication: MAJOR DEPRESSION
     Route: 048
     Dates: start: 20030501
  2. SEROQUEL [Suspect]
     Dates: start: 20030901

REACTIONS (5)
  - BLOOD CHOLESTEROL INCREASED [None]
  - SINUS OPERATION [None]
  - SUICIDE ATTEMPT [None]
  - TYPE 2 DIABETES MELLITUS [None]
  - WEIGHT INCREASED [None]
